FAERS Safety Report 15654074 (Version 1)
Quarter: 2018Q4

REPORT INFORMATION
  Report Type: Spontaneous
  Country: US (occurrence: US)
  Receive Date: 20181115
  Receipt Date: 20181115
  Transmission Date: 20190205
  Serious: No
  Sender: FDA-Public Use
  Company Number: None

PATIENT
  Age: 57 Year
  Sex: Male

DRUGS (1)
  1. ATRIPLA [Suspect]
     Active Substance: EFAVIRENZ\EMTRICITABINE\TENOFOVIR DISOPROXIL FUMARATE
     Route: 048
     Dates: start: 201711

REACTIONS (7)
  - Dysuria [None]
  - Rash [None]
  - Pruritus [None]
  - Nausea [None]
  - Back pain [None]
  - Laboratory test abnormal [None]
  - Renal disorder [None]

NARRATIVE: CASE EVENT DATE: 20181114
